FAERS Safety Report 18098213 (Version 2)
Quarter: 2020Q3

REPORT INFORMATION
  Report Type: Report from Study
  Country: AR (occurrence: AR)
  Receive Date: 20200731
  Receipt Date: 20200804
  Transmission Date: 20201103
  Serious: Yes (Hospitalization, Other)
  Sender: FDA-Public Use
  Company Number: AR-ACTELION-A-CH2019-193094

PATIENT
  Age: 36 Year
  Sex: Female
  Weight: 59 kg

DRUGS (3)
  1. OPSUMIT [Suspect]
     Active Substance: MACITENTAN
     Indication: PULMONARY ARTERIAL HYPERTENSION
     Dosage: 10 MG, QD
     Route: 048
     Dates: start: 20190327
  2. SILDENAFIL. [Concomitant]
     Active Substance: SILDENAFIL
  3. TREPROSTINIL. [Concomitant]
     Active Substance: TREPROSTINIL
     Route: 058

REACTIONS (13)
  - Endoscopy [Unknown]
  - Transplant evaluation [Unknown]
  - Fatigue [Unknown]
  - Injection site pain [Unknown]
  - Tachycardia [Unknown]
  - Feeling abnormal [Recovering/Resolving]
  - Agitation [Unknown]
  - Depressed mood [Recovering/Resolving]
  - Device related infection [Unknown]
  - Pain [Unknown]
  - Dyspnoea [Unknown]
  - Tonsillitis [Recovering/Resolving]
  - Device placement issue [Unknown]

NARRATIVE: CASE EVENT DATE: 2020
